FAERS Safety Report 4798668-3 (Version None)
Quarter: 2005Q4

REPORT INFORMATION
  Report Type: 
  Country: None (occurrence: None)
  Receive Date: 20051014
  Receipt Date: 20051003
  Transmission Date: 20060501
  Serious: Yes (Other)
  Sender: FDA-Public Use
  Company Number: US-MERCK-0510USA02510

PATIENT
  Age: 74 Year
  Sex: Female
  Weight: 102 kg

DRUGS (9)
  1. VIOXX [Suspect]
     Indication: PAIN IN EXTREMITY
     Route: 048
     Dates: start: 20000303, end: 20000401
  2. VIOXX [Suspect]
     Indication: LIMB OPERATION
     Route: 048
     Dates: start: 20000303, end: 20000401
  3. NITRO-DUR [Concomitant]
     Route: 065
  4. BUSPAR [Concomitant]
     Route: 065
  5. ZOCOR [Concomitant]
     Route: 065
  6. BUMEX [Concomitant]
     Route: 065
  7. TOPROL-XL [Concomitant]
     Route: 065
  8. [THERAPY UNSPECIFIED] [Concomitant]
     Route: 065
  9. MONOPRIL [Concomitant]
     Route: 065

REACTIONS (5)
  - CARDIAC FAILURE CONGESTIVE [None]
  - CONDITION AGGRAVATED [None]
  - MYOCARDIAL INFARCTION [None]
  - NEOPLASM MALIGNANT [None]
  - TREATMENT NONCOMPLIANCE [None]
